FAERS Safety Report 23428741 (Version 4)
Quarter: 2025Q2

REPORT INFORMATION
  Report Type: Report from Study
  Country: US (occurrence: US)
  Receive Date: 20240122
  Receipt Date: 20250428
  Transmission Date: 20250716
  Serious: Yes (Other)
  Sender: PFIZER
  Company Number: US-PFIZER INC-PV202300028329

PATIENT
  Age: 64 Year
  Sex: Female

DRUGS (35)
  1. XELJANZ XR [Suspect]
     Active Substance: TOFACITINIB CITRATE
     Indication: Rheumatoid arthritis
     Dosage: TAKE 1 TABLET BY MOUTH ONCE A DAY
     Route: 048
     Dates: start: 20220520
  2. ATORVASTATIN [Concomitant]
     Active Substance: ATORVASTATIN
  3. CALCIUM\ERGOCALCIFEROL [Concomitant]
     Active Substance: CALCIUM\ERGOCALCIFEROL
  4. CARBIDOPA\LEVODOPA [Concomitant]
     Active Substance: CARBIDOPA\LEVODOPA
  5. DEPO-MEDROL [Concomitant]
     Active Substance: METHYLPREDNISOLONE ACETATE
  6. FISH OIL [Concomitant]
     Active Substance: FISH OIL
  7. FLUOROMETHOLONE [Concomitant]
     Active Substance: FLUOROMETHOLONE
  8. FOSAMAX [Concomitant]
     Active Substance: ALENDRONATE SODIUM
  9. HYDROCORTISONE ACETATE [Concomitant]
     Active Substance: HYDROCORTISONE ACETATE
  10. IBUPROFEN [Concomitant]
     Active Substance: IBUPROFEN
  11. LEXAPRO [Concomitant]
     Active Substance: ESCITALOPRAM OXALATE
  12. MELOXICAM [Concomitant]
     Active Substance: MELOXICAM
  13. METHYLPREDNISOLONE [Concomitant]
     Active Substance: METHYLPREDNISOLONE
  14. OMEPRAZOLE [Concomitant]
     Active Substance: OMEPRAZOLE
  15. SIMPONI ARIA [Concomitant]
     Active Substance: GOLIMUMAB
  16. SINEMET [Concomitant]
     Active Substance: CARBIDOPA\LEVODOPA
  17. SINGULAIR [Concomitant]
     Active Substance: MONTELUKAST SODIUM
  18. SYMBICORT [Concomitant]
     Active Substance: BUDESONIDE\FORMOTEROL FUMARATE DIHYDRATE
  19. TRAZODONE [Concomitant]
     Active Substance: TRAZODONE HYDROCHLORIDE
  20. VITAMIN D NOS [Concomitant]
     Active Substance: CHOLECALCIFEROL\ERGOCALCIFEROL
  21. ALENDRONATE [Concomitant]
     Active Substance: ALENDRONATE SODIUM
  22. AMOXICILLIN\CLAVULANATE POTASSIUM [Concomitant]
     Active Substance: AMOXICILLIN\CLAVULANATE POTASSIUM
  23. CICLOPIROX [Concomitant]
     Active Substance: CICLOPIROX
  24. BETAMETHASONE DIPROPIONATE\CLOTRIMAZOLE [Concomitant]
     Active Substance: BETAMETHASONE DIPROPIONATE\CLOTRIMAZOLE
  25. ESCITALOPRAM [Concomitant]
     Active Substance: ESCITALOPRAM OXALATE
  26. FLUARIX QUADRIVALENT 2015/2016 [Concomitant]
     Active Substance: INFLUENZA A VIRUS A/CHRISTCHURCH/16/2010 NIB-74XP (H1N1) ANTIGEN (FORMALDEHYDE INACTIVATED)\INFLUENZ
  27. FLUARIX QUADRIVALENT 2015/2016 [Concomitant]
     Active Substance: INFLUENZA A VIRUS A/CHRISTCHURCH/16/2010 NIB-74XP (H1N1) ANTIGEN (FORMALDEHYDE INACTIVATED)\INFLUENZ
  28. ITRACONAZOLE [Concomitant]
     Active Substance: ITRACONAZOLE
  29. KETOCONAZOLE [Concomitant]
     Active Substance: KETOCONAZOLE
  30. MODERNA COVID-19 VACCINE [Concomitant]
     Active Substance: ELASOMERAN
  31. MUPIROCIN [Concomitant]
     Active Substance: MUPIROCIN
  32. NYAMYC [Concomitant]
     Active Substance: NYSTATIN
  33. NYSTATIN [Concomitant]
     Active Substance: NYSTATIN
  34. PANTOPRAZOLE [Concomitant]
     Active Substance: PANTOPRAZOLE
  35. PFIZER COVID 19 BIVALENT BA 4/5 VACCINE [Concomitant]

REACTIONS (8)
  - Fungal skin infection [Not Recovered/Not Resolved]
  - Skin discomfort [Not Recovered/Not Resolved]
  - Product dose omission issue [Unknown]
  - Therapeutic product effect incomplete [Not Recovered/Not Resolved]
  - Pain [Not Recovered/Not Resolved]
  - Rash [Not Recovered/Not Resolved]
  - Condition aggravated [Not Recovered/Not Resolved]
  - Skin irritation [Not Recovered/Not Resolved]
